FAERS Safety Report 7395546-0 (Version None)
Quarter: 2011Q2

REPORT INFORMATION
  Report Type: 
  Country: None (occurrence: None)
  Receive Date: 20110405
  Receipt Date: 20110331
  Transmission Date: 20111010
  Serious: Yes (Other)
  Sender: FDA-Public Use
  Company Number: US-ROCHE-761947

PATIENT
  Sex: Female

DRUGS (6)
  1. PREMARIN [Suspect]
     Route: 065
  2. ACTONEL [Suspect]
     Route: 065
  3. FOSAMAX [Suspect]
     Route: 065
  4. BONIVA [Suspect]
     Indication: OSTEOPOROSIS
     Route: 065
     Dates: start: 20100201, end: 20100401
  5. BONIVA [Suspect]
     Route: 065
     Dates: start: 20100901
  6. FORTEO [Concomitant]

REACTIONS (8)
  - MUSCULOSKELETAL DISORDER [None]
  - WRIST FRACTURE [None]
  - URTICARIA [None]
  - PATELLA FRACTURE [None]
  - ANGIOPATHY [None]
  - SPINAL MENINGEAL CYST [None]
  - OSTEOPOROSIS [None]
  - OSTEOPENIA [None]
